FAERS Safety Report 4920378-X (Version None)
Quarter: 2006Q1

REPORT INFORMATION
  Report Type: 
  Country: None (occurrence: None)
  Receive Date: 20060113
  Receipt Date: 20051010
  Transmission Date: 20060701
  Serious: No
  Sender: FDA-Public Use
  Company Number: 2005SP003430

PATIENT
  Age: 40 Year
  Sex: Female
  Weight: 80.7403 kg

DRUGS (2)
  1. LUNESTA [Suspect]
     Indication: INSOMNIA
     Dosage: 2 MG, HS, ORAL
     Route: 048
     Dates: start: 20050901, end: 20050901
  2. SONATA [Concomitant]

REACTIONS (3)
  - DYSGEUSIA [None]
  - INSOMNIA [None]
  - VOMITING [None]
